FAERS Safety Report 11326468 (Version 1)
Quarter: 2015Q3

REPORT INFORMATION
  Report Type: Report from Study
  Country: FR (occurrence: FR)
  Receive Date: 20150731
  Receipt Date: 20150731
  Transmission Date: 20151125
  Serious: Yes (Death, Other)
  Sender: FDA-Public Use
  Company Number: FR-ACCORD-032679

PATIENT
  Age: 51 Year
  Sex: Female

DRUGS (1)
  1. MITOMYCIN. [Suspect]
     Active Substance: MITOMYCIN
     Indication: ANAL CANCER
     Dosage: RECEIVED 4 CYCLES OF MITOMYCIN.

REACTIONS (2)
  - Pulmonary veno-occlusive disease [Unknown]
  - Right ventricular failure [Fatal]
